FAERS Safety Report 20724078 (Version 1)
Quarter: 2022Q2

REPORT INFORMATION
  Report Type: Report from Study
  Country: US (occurrence: US)
  Receive Date: 20220419
  Receipt Date: 20220419
  Transmission Date: 20220721
  Serious: No
  Sender: FDA-Public Use
  Company Number: US-NOVARTISTESTPH-NVSC2022US089857

PATIENT
  Age: 100 Year
  Sex: Female

DRUGS (1)
  1. LEQVIO [Suspect]
     Active Substance: INCLISIRAN SODIUM
     Indication: Product used for unknown indication
     Dosage: EVERY 6 MONTHS
     Route: 058
     Dates: start: 20220301

REACTIONS (6)
  - Blood cholesterol abnormal [Unknown]
  - Blood glucose increased [Unknown]
  - Joint injury [Unknown]
  - Meniscus injury [Unknown]
  - Dyspnoea [Unknown]
  - Asthma [Unknown]

NARRATIVE: CASE EVENT DATE: 20220301
